FAERS Safety Report 26130736 (Version 1)
Quarter: 2025Q4

REPORT INFORMATION
  Report Type: Spontaneous
  Country: US (occurrence: None)
  Receive Date: 20251208
  Receipt Date: 20251208
  Transmission Date: 20260117
  Serious: Yes (Hospitalization)
  Sender: FDA-CTU
  Company Number: None

PATIENT
  Age: 69 Year
  Sex: Male
  Weight: 94 kg

DRUGS (1)
  1. SEMAGLUTIDE [Suspect]
     Active Substance: SEMAGLUTIDE
     Dosage: 1 MG QWEEK SQ
     Route: 058
     Dates: start: 20250603, end: 20251102

REACTIONS (2)
  - Ileus [None]
  - Diarrhoea [None]

NARRATIVE: CASE EVENT DATE: 20251101
